FAERS Safety Report 17610429 (Version 6)
Quarter: 2020Q2

REPORT INFORMATION
  Report Type: Spontaneous
  Country: US (occurrence: US)
  Receive Date: 20200401
  Receipt Date: 20200519
  Transmission Date: 20200713
  Serious: No
  Sender: FDA-Public Use
  Company Number: US-PFIZER INC-2020133546

PATIENT
  Age: 77 Year
  Sex: Female
  Weight: 81.65 kg

DRUGS (1)
  1. PREGABALIN. [Suspect]
     Active Substance: PREGABALIN
     Indication: NEUROPATHY PERIPHERAL
     Dosage: 300 MG, DAILY (1 CAPSULE BY MOUTH IN THE MORNING, 2 BY MOUTH AT NIGHT)
     Route: 048

REACTIONS (3)
  - Insomnia [Unknown]
  - Intentional product use issue [Unknown]
  - Drug ineffective [Not Recovered/Not Resolved]

NARRATIVE: CASE EVENT DATE: 2020
